FAERS Safety Report 9921897 (Version 2)
Quarter: 2014Q2

REPORT INFORMATION
  Report Type: Report from Study
  Country: JP (occurrence: JP)
  Receive Date: 20140225
  Receipt Date: 20140514
  Transmission Date: 20141212
  Serious: Yes (Life-Threatening, Hospitalization)
  Sender: FDA-Public Use
  Company Number: JP-SA-2014SA022587

PATIENT
  Age: 11 Year
  Sex: Male
  Weight: 22.3 kg

DRUGS (2)
  1. THYMOGLOBULINE [Suspect]
     Indication: BONE MARROW CONDITIONING REGIMEN
     Route: 042
     Dates: start: 20130304, end: 20130306
  2. IMMUNOGLOBULIN HUMAN NORMAL [Concomitant]
     Indication: ANTIVIRAL PROPHYLAXIS
     Dates: start: 20130307, end: 20130604

REACTIONS (2)
  - Febrile neutropenia [Recovered/Resolved]
  - Acute myeloid leukaemia recurrent [Not Recovered/Not Resolved]
